FAERS Safety Report 7917626-0 (Version None)
Quarter: 2011Q4

REPORT INFORMATION
  Report Type: 
  Country: None (occurrence: None)
  Receive Date: 20111116
  Receipt Date: 20111103
  Transmission Date: 20120403
  Serious: Yes (Other)
  Sender: FDA-Public Use
  Company Number: CA-ELI_LILLY_AND_COMPANY-CA201111000969

PATIENT
  Age: 32 Year
  Sex: Female

DRUGS (16)
  1. LYRICA [Concomitant]
     Indication: BACK PAIN
     Dosage: 100 MG, BID
     Route: 048
     Dates: start: 20090101, end: 20100301
  2. LYRICA [Concomitant]
     Dosage: 125 MG, BID
     Route: 048
     Dates: start: 20100301, end: 20100401
  3. MORPHINE                           /00036301/ [Concomitant]
     Dosage: 10 MG, PRN
     Route: 050
     Dates: start: 20110101
  4. LYRICA [Concomitant]
     Dosage: 300 MG, TID
     Route: 048
     Dates: start: 20110501
  5. MORPHINE                           /00036301/ [Concomitant]
     Indication: BACK PAIN
     Dosage: 10 MG, UNK
     Route: 048
     Dates: start: 20110101
  6. CYMBALTA [Suspect]
     Dosage: 30 MG, BID
     Route: 048
     Dates: start: 20100701
  7. OXYCONTIN [Concomitant]
     Indication: BACK PAIN
     Dosage: 10 MG, BID
     Route: 048
     Dates: start: 20090101, end: 20090201
  8. LYRICA [Concomitant]
     Dosage: 125 MG, EACH MORNING
     Route: 048
     Dates: start: 20100401, end: 20100501
  9. LYRICA [Concomitant]
     Dosage: 150 MG, EACH EVENING
     Route: 048
     Dates: start: 20100401, end: 20100501
  10. AMITRIPTYLINE                      /00002201/ [Concomitant]
     Dosage: 10 MG, BID
     Route: 048
  11. OXYCONTIN [Concomitant]
     Dosage: 5 MG, EVERY 4 HRS
     Route: 048
     Dates: start: 20090101
  12. LYRICA [Concomitant]
     Dosage: 200 MG, BID
     Route: 048
     Dates: start: 20100501, end: 20110101
  13. OXYCONTIN [Concomitant]
     Dosage: 20 MG, BID
     Dates: start: 20090201
  14. LYRICA [Concomitant]
     Dosage: 200 MG, EACH MORNING
     Route: 048
     Dates: start: 20110101, end: 20110201
  15. LYRICA [Concomitant]
     Dosage: 300 MG, EACH EVENING
     Route: 048
     Dates: start: 20110101, end: 20110201
  16. LYRICA [Concomitant]
     Dosage: 300 MG, BID
     Route: 048
     Dates: start: 20110201, end: 20110501

REACTIONS (5)
  - FIBROMYALGIA [None]
  - SOMNOLENCE [None]
  - UTERINE CANCER [None]
  - OEDEMA PERIPHERAL [None]
  - IRRITABILITY [None]
